FAERS Safety Report 12372669 (Version 3)
Quarter: 2016Q2

REPORT INFORMATION
  Report Type: Report from Study
  Country: US (occurrence: US)
  Receive Date: 20160516
  Receipt Date: 20160606
  Transmission Date: 20160815
  Serious: Yes (Death, Life-Threatening)
  Sender: FDA-Public Use
  Company Number: US-CELGENEUS-USA-2014115666

PATIENT
  Age: 64 Year
  Sex: Female
  Weight: 94.8 kg

DRUGS (11)
  1. INVANZ [Concomitant]
     Active Substance: ERTAPENEM SODIUM
     Indication: BACTERIAL INFECTION
     Route: 065
     Dates: start: 20110624
  2. PRBC [Concomitant]
     Indication: ANAEMIA
     Route: 065
     Dates: start: 201106, end: 20110622
  3. INSULIN [Concomitant]
     Active Substance: INSULIN NOS
     Indication: DIABETES MELLITUS
     Dosage: SLIDING SCALE
     Route: 065
  4. OFATUMUMAB [Concomitant]
     Active Substance: OFATUMUMAB
     Indication: CHRONIC LYMPHOCYTIC LEUKAEMIA
     Dosage: 22.5 MILLIGRAM/KILOGRAM
     Route: 065
     Dates: start: 20110613
  5. MERREM [Concomitant]
     Active Substance: MEROPENEM
     Indication: ESCHERICHIA INFECTION
     Route: 040
     Dates: start: 20110614, end: 20110624
  6. REVLIMID [Suspect]
     Active Substance: LENALIDOMIDE
     Indication: CHRONIC LYMPHOCYTIC LEUKAEMIA
     Dosage: 10 MILLIGRAM
     Route: 048
     Dates: start: 20110523, end: 20110613
  7. DAPTOMYCIN. [Concomitant]
     Active Substance: DAPTOMYCIN
     Indication: PRODUCT USED FOR UNKNOWN INDICATION
     Dosage: 6 IU (INTERNATIONAL UNIT)
     Route: 041
     Dates: start: 20110624
  8. LOPRESSOR [Concomitant]
     Active Substance: METOPROLOL TARTRATE
     Indication: PRODUCT USED FOR UNKNOWN INDICATION
     Dosage: 5 IU (INTERNATIONAL UNIT)
     Route: 065
  9. SYNERCID [Concomitant]
     Active Substance: DALFOPRISTIN\QUINUPRISTIN
     Indication: BACTERIAL INFECTION
     Route: 040
     Dates: start: 20110618, end: 20110622
  10. SYNTHROID [Concomitant]
     Active Substance: LEVOTHYROXINE SODIUM
     Indication: PRODUCT USED FOR UNKNOWN INDICATION
     Route: 065
  11. SINGLE DONOR PLATELETS [Concomitant]
     Indication: THROMBOCYTOPENIA
     Route: 065
     Dates: start: 201106, end: 20110624

REACTIONS (2)
  - Death [Fatal]
  - Bacteraemia [Unknown]

NARRATIVE: CASE EVENT DATE: 20110614
